FAERS Safety Report 23469939 (Version 1)
Quarter: 2024Q1

REPORT INFORMATION
  Report Type: Report from Study
  Country: EG (occurrence: EG)
  Receive Date: 20240202
  Receipt Date: 20240202
  Transmission Date: 20240410
  Serious: Yes (Death, Hospitalization)
  Sender: FDA-Public Use
  Company Number: EG-SERVIER-S24000744

PATIENT
  Age: 63 Year
  Sex: Female

DRUGS (1)
  1. ONIVYDE [Suspect]
     Active Substance: IRINOTECAN HYDROCHLORIDE
     Indication: Pancreatic carcinoma
     Dosage: 2 UNK
     Route: 042
     Dates: start: 20231012, end: 20231219

REACTIONS (3)
  - Gastrointestinal bacterial infection [Fatal]
  - Sepsis [Fatal]
  - Hypotension [Fatal]

NARRATIVE: CASE EVENT DATE: 20240119
